FAERS Safety Report 18874175 (Version 1)
Quarter: 2021Q1

REPORT INFORMATION
  Report Type: Spontaneous
  Country: FR (occurrence: FR)
  Receive Date: 20210210
  Receipt Date: 20210210
  Transmission Date: 20210420
  Serious: Yes (Hospitalization)
  Sender: FDA-Public Use
  Company Number: NVSC2021FR028069

PATIENT
  Age: 49 Year
  Sex: Male

DRUGS (2)
  1. TEGRETOL [Suspect]
     Active Substance: CARBAMAZEPINE
     Indication: NEURALGIA
     Dosage: 600 MG
     Route: 048
     Dates: start: 201712, end: 20201229
  2. MONOTILDIEM [Suspect]
     Active Substance: DILTIAZEM
     Indication: ANGINA PECTORIS
     Dosage: 1 DF
     Route: 048
     Dates: end: 202012

REACTIONS (1)
  - Central nervous system lupus [Not Recovered/Not Resolved]

NARRATIVE: CASE EVENT DATE: 2020
